FAERS Safety Report 8230989-4 (Version None)
Quarter: 2012Q1

REPORT INFORMATION
  Report Type: 
  Country: None (occurrence: None)
  Receive Date: 20120323
  Receipt Date: 20120309
  Transmission Date: 20120608
  Serious: Yes (Other)
  Sender: FDA-Public Use
  Company Number: DE-RANBAXY-2012US-54154

PATIENT
  Sex: Female

DRUGS (2)
  1. ONDANSETRON [Suspect]
     Indication: NAUSEA
     Dosage: UNK
     Route: 065
  2. ONDANSETRON [Suspect]
     Indication: VOMITING

REACTIONS (3)
  - CONGENITAL ANOMALY IN OFFSPRING [None]
  - OFF LABEL USE [None]
  - MATERNAL EXPOSURE DURING PREGNANCY [None]
